FAERS Safety Report 14624815 (Version 6)
Quarter: 2018Q2

REPORT INFORMATION
  Report Type: Spontaneous
  Country: US (occurrence: US)
  Receive Date: 20180312
  Receipt Date: 20180608
  Transmission Date: 20180711
  Serious: No
  Sender: FDA-Public Use
  Company Number: US-PFIZER INC-2018100445

PATIENT
  Age: 65 Year
  Sex: Female
  Weight: 52 kg

DRUGS (1)
  1. IBRANCE [Suspect]
     Active Substance: PALBOCICLIB
     Indication: BREAST CANCER METASTATIC
     Dosage: 125 MG, CYCLIC (125MG ONCE A DAY FOR 21 DAYS AND OFF FOR 7 DAYS)
     Route: 048
     Dates: start: 2018, end: 2018

REACTIONS (10)
  - Tremor [Unknown]
  - Fatigue [Unknown]
  - Confusional state [Unknown]
  - Skin exfoliation [Unknown]
  - Pollakiuria [Recovered/Resolved]
  - Nasopharyngitis [Unknown]
  - Dysphonia [Unknown]
  - Pruritus [Unknown]
  - Pain [Unknown]
  - Full blood count decreased [Unknown]

NARRATIVE: CASE EVENT DATE: 2018
